FAERS Safety Report 20429985 (Version 1)
Quarter: 2022Q1

REPORT INFORMATION
  Report Type: Report from Study
  Country: FR (occurrence: FR)
  Receive Date: 20220204
  Receipt Date: 20220204
  Transmission Date: 20220423
  Serious: Yes (Hospitalization, Other)
  Sender: FDA-Public Use
  Company Number: FR-SERVIER-S19004894

PATIENT

DRUGS (9)
  1. PEGASPARGASE [Suspect]
     Active Substance: PEGASPARGASE
     Indication: Acute lymphocytic leukaemia
     Dosage: 5000 IU, ON D12, D26
     Route: 042
     Dates: start: 20190210
  2. PREDNISOLONE [Suspect]
     Active Substance: PREDNISOLONE
     Indication: Acute lymphocytic leukaemia
     Dosage: 120 MG, FROM D8 TO D28
     Route: 048
     Dates: start: 20190206
  3. TN UNSPECIFIED [Concomitant]
     Indication: Acute lymphocytic leukaemia
     Dosage: 2 MG, ON D8, D15, D22, D27
     Route: 042
     Dates: start: 20190206
  4. TN UNSPECIFIED [Concomitant]
     Indication: Acute lymphocytic leukaemia
     Dosage: 80 MG, ON D8, D15, D22, D29
     Route: 042
     Dates: start: 20190206
  5. TN UNSPECIFIED [Concomitant]
     Indication: Acute lymphocytic leukaemia
     Dosage: 2000 MG, ON D9
     Route: 042
     Dates: start: 20190207, end: 20190207
  6. TN UNSPECIFIED [Concomitant]
     Indication: Acute lymphocytic leukaemia
     Dosage: UNK, D1
     Route: 037
     Dates: start: 20190130, end: 20190130
  7. TN UNSPECIFIED [Concomitant]
     Dosage: 15 MG, ON D13, D24
     Route: 037
     Dates: start: 20190211
  8. TN UNSPECIFIED [Concomitant]
     Indication: Acute lymphocytic leukaemia
     Dosage: 30 MG, ON D13, D24
     Route: 037
     Dates: start: 20190211
  9. TN UNSPECIFIED [Concomitant]
     Indication: Acute lymphocytic leukaemia
     Dosage: 15 MG, ON D13, D24
     Route: 037
     Dates: start: 20190211

REACTIONS (3)
  - Hyperglycaemia [Not Recovered/Not Resolved]
  - Hyperlipidaemia [Recovered/Resolved]
  - Hypofibrinogenaemia [Recovered/Resolved]

NARRATIVE: CASE EVENT DATE: 20190213
